FAERS Safety Report 11404677 (Version 1)
Quarter: 2015Q3

REPORT INFORMATION
  Report Type: Report from Study
  Country: FR (occurrence: FR)
  Receive Date: 20150821
  Receipt Date: 20150821
  Transmission Date: 20151125
  Serious: Yes (Hospitalization)
  Sender: FDA-Public Use
  Company Number: FR-GLAXOSMITHKLINE-FR2015GSK119806

PATIENT
  Age: 63 Year
  Sex: Male

DRUGS (9)
  1. AMIODARONE [Concomitant]
     Active Substance: AMIODARONE
  2. AMLOR [Concomitant]
     Active Substance: AMLODIPINE BESYLATE
  3. CARDENSIEL [Concomitant]
     Active Substance: BISOPROLOL FUMARATE
  4. TRIATEC [Concomitant]
     Active Substance: RAMIPRIL
  5. ALDALIX [Concomitant]
     Active Substance: FUROSEMIDE SODIUM\SPIRONOLACTONE
  6. CRESTOR [Concomitant]
     Active Substance: ROSUVASTATIN CALCIUM
  7. TICLID [Concomitant]
     Active Substance: TICLOPIDINE HYDROCHLORIDE
  8. OMEGA-3-ACID ETHYL ESTERS. [Suspect]
     Active Substance: OMEGA-3-ACID ETHYL ESTERS
     Indication: ISCHAEMIC HEART DISEASE PROPHYLAXIS
     Dosage: UNK
     Dates: start: 20060902, end: 20070328
  9. KARDEGIC [Concomitant]
     Active Substance: ASPIRIN LYSINE

REACTIONS (1)
  - Anaemia [Unknown]

NARRATIVE: CASE EVENT DATE: 20120406
